FAERS Safety Report 8845231 (Version 1)
Quarter: 2012Q4

REPORT INFORMATION
  Report Type: Spontaneous
  Country: JP (occurrence: None)
  Receive Date: 20121015
  Receipt Date: 20121015
  Transmission Date: 20130627
  Serious: Yes (Other)
  Sender: FDA-Public Use
  Company Number: 2012P1060775

PATIENT
  Age: 64 Year
  Sex: Male

DRUGS (13)
  1. FAMOTIDINE [Suspect]
     Route: 048
  2. HALCION (TRIAZOLAM) [Concomitant]
  3. CLARITH (CLARITHROMYCIN) [Concomitant]
  4. MUCOSTA (REBAMIPIDE) [Concomitant]
  5. EUGLUCON (GLYBEURIDE) [Concomitant]
  6. METGLUCO (METFORMIN HYDROCHLORIDE) [Concomitant]
  7. JANUVIA TABLETS (SITAGLIPTIN PHOSPHATE) [Concomitant]
  8. BASEN (VOGLIBOSE) [Concomitant]
  9. MOBIC (MELOXICAM) [Concomitant]
  10. MAGLAX (MAGNESIUM OXIDE) [Concomitant]
  11. DEPAS (ETIZOLAM) [Concomitant]
  12. PL GRANULES (ACETAMINOPHEN, CAFFEINE, PRMETHAZINE METHYLENDEDISALICYLATE, SALICYLMIDE) [Concomitant]
  13. GRANULES [Concomitant]

REACTIONS (1)
  - Retinal haemorrhage [None]
